FAERS Safety Report 23336820 (Version 3)
Quarter: 2024Q1

REPORT INFORMATION
  Report Type: Report from Study
  Country: US (occurrence: US)
  Receive Date: 20231226
  Receipt Date: 20240315
  Transmission Date: 20240410
  Serious: Yes (Hospitalization, Other)
  Sender: FDA-Public Use
  Company Number: US-ABBVIE-5541306

PATIENT
  Sex: Female
  Weight: 55.338 kg

DRUGS (8)
  1. HUMIRA [Suspect]
     Active Substance: ADALIMUMAB
     Indication: Crohn^s disease
     Dosage: FORM STRENGTH: 40 MG,?CITRATE FREE PEN
     Route: 058
     Dates: start: 200808, end: 20231023
  2. HUMIRA [Suspect]
     Active Substance: ADALIMUMAB
     Dosage: FORM STRENGTH: 40 MG,?CITRATE FREE
     Route: 058
     Dates: start: 20231130
  3. VITAMIN B12 [Concomitant]
     Active Substance: CYANOCOBALAMIN
     Indication: Vitamin supplementation
  4. FOLIC ACID [Concomitant]
     Active Substance: FOLIC ACID
     Indication: Crohn^s disease
  5. LEVOTHYROXINE [Concomitant]
     Active Substance: LEVOTHYROXINE\LEVOTHYROXINE SODIUM
     Indication: Thyroid disorder
  6. OMEPRAZOLE [Concomitant]
     Active Substance: OMEPRAZOLE
     Indication: Crohn^s disease
  7. LACOSAMIDE [Concomitant]
     Active Substance: LACOSAMIDE
     Indication: Seizure
  8. VITAMIN D2 [Concomitant]
     Active Substance: ERGOCALCIFEROL
     Indication: Vitamin supplementation
     Route: 048

REACTIONS (8)
  - Osteoarthritis [Recovering/Resolving]
  - Osteopenia [Recovering/Resolving]
  - Joint dislocation [Recovering/Resolving]
  - Osteoporosis [Recovering/Resolving]
  - Joint injury [Recovered/Resolved]
  - Neuropathy peripheral [Not Recovered/Not Resolved]
  - Thyroid cancer [Recovered/Resolved]
  - Goitre [Recovered/Resolved]

NARRATIVE: CASE EVENT DATE: 20100101
